FAERS Safety Report 9700096 (Version 1)
Quarter: 2013Q4

REPORT INFORMATION
  Report Type: Spontaneous
  Country: GB (occurrence: GB)
  Receive Date: 20131121
  Receipt Date: 20131121
  Transmission Date: 20140711
  Serious: Yes (Disabling, Other)
  Sender: FDA-Public Use
  Company Number: PHHY2013GB130711

PATIENT
  Age: 58 Year
  Sex: Male
  Weight: 42 kg

DRUGS (7)
  1. ATORVASTATIN [Suspect]
     Indication: HYPERCHOLESTEROLAEMIA
     Dosage: 80 MG, UNK
     Route: 048
     Dates: start: 20120820, end: 20130831
  2. CLOPIDOGREL [Concomitant]
  3. BISOPROLOL [Concomitant]
  4. ASPIRIN [Concomitant]
  5. RANITIDINE [Concomitant]
  6. CETIRIZINE [Concomitant]
  7. HYDROCHLOROTHIAZIDE W/VALSARTAN [Concomitant]

REACTIONS (4)
  - Skin disorder [Not Recovered/Not Resolved]
  - Muscle spasms [Recovering/Resolving]
  - Muscle rupture [Recovering/Resolving]
  - Fatigue [Recovering/Resolving]
